FAERS Safety Report 6402707-3 (Version None)
Quarter: 2009Q4

REPORT INFORMATION
  Report Type: 
  Country: None (occurrence: None)
  Receive Date: 20091013
  Receipt Date: 20090930
  Transmission Date: 20100525
  Serious: Yes (Disabling, Other)
  Sender: FDA-Public Use
  Company Number: 2009AP003980

PATIENT
  Age: 69 Year
  Sex: Female

DRUGS (2)
  1. ALENDRONATE SODIUM [Suspect]
     Indication: OSTEOPOROSIS
     Dosage: 70 MG;/QW/PO
     Route: 048
     Dates: start: 20090101, end: 20090901
  2. ERGOCALCIFEROL [Concomitant]

REACTIONS (5)
  - BURNING SENSATION [None]
  - DYSKINESIA [None]
  - IMPAIRED WORK ABILITY [None]
  - PAIN IN EXTREMITY [None]
  - SOMNOLENCE [None]
